FAERS Safety Report 25478977 (Version 2)
Quarter: 2025Q3

REPORT INFORMATION
  Report Type: Spontaneous
  Country: US (occurrence: US)
  Receive Date: 20250625
  Receipt Date: 20250930
  Transmission Date: 20251021
  Serious: No
  Sender: PFIZER
  Company Number: US-PFIZER INC-202500126302

PATIENT
  Age: 22 Year
  Sex: Male

DRUGS (2)
  1. CIBINQO [Suspect]
     Active Substance: ABROCITINIB
     Indication: Dermatitis atopic
     Dosage: 100 MG, DAILY (QD, 30 DAYS, 30 TABLET(S),)
     Route: 048
  2. CIBINQO [Suspect]
     Active Substance: ABROCITINIB
     Indication: Lichen planopilaris

REACTIONS (3)
  - Condition aggravated [Unknown]
  - Influenza [Unknown]
  - Sleep disorder [Unknown]
